FAERS Safety Report 22660798 (Version 1)
Quarter: 2023Q2

REPORT INFORMATION
  Report Type: Spontaneous
  Country: FI (occurrence: FI)
  Receive Date: 20230630
  Receipt Date: 20230630
  Transmission Date: 20230722
  Serious: No
  Sender: FDA-Public Use
  Company Number: FI-JAZZ PHARMACEUTICALS-2023-FI-006564

PATIENT
  Sex: Female

DRUGS (1)
  1. CANNABIDIOL [Suspect]
     Active Substance: CANNABIDIOL
     Indication: Severe myoclonic epilepsy of infancy

REACTIONS (3)
  - Illness [Unknown]
  - Pyrexia [Unknown]
  - Drug ineffective [Unknown]
